FAERS Safety Report 24910334 (Version 1)
Quarter: 2025Q1

REPORT INFORMATION
  Report Type: Spontaneous
  Country: US (occurrence: US)
  Receive Date: 20250131
  Receipt Date: 20250131
  Transmission Date: 20250408
  Serious: Yes (Other)
  Sender: PFIZER
  Company Number: US-PFIZER INC-PV202500011214

PATIENT
  Age: 27 Year
  Sex: Male

DRUGS (1)
  1. IBUTILIDE FUMARATE [Suspect]
     Active Substance: IBUTILIDE FUMARATE

REACTIONS (3)
  - Accidental exposure to product [Recovered/Resolved]
  - Exposure via skin contact [Recovered/Resolved]
  - Dermatitis bullous [Recovered/Resolved]
